FAERS Safety Report 8788538 (Version 1)
Quarter: 2012Q4

REPORT INFORMATION
  Report Type: 
  Country: US (occurrence: US)
  Receive Date: 20120914
  Receipt Date: 20120914
  Transmission Date: 20130627
  Serious: Yes (Other)
  Sender: FDA-Public Use
  Company Number: US-VERTEX PHARMACEUTICAL INC.-2012-019667

PATIENT
  Age: 54 None
  Sex: Female
  Weight: 79.37 kg

DRUGS (5)
  1. INCIVEK [Suspect]
     Indication: HEPATITIS C
     Dosage: 750 mg, tid
     Route: 048
     Dates: start: 20120706
  2. PEGASYS [Concomitant]
     Indication: HEPATITIS C
     Dosage: 180 ?g, UNK
     Route: 058
     Dates: start: 20120706, end: 201207
  3. PEGASYS [Concomitant]
     Dosage: 135 ?g, UNK
     Route: 058
     Dates: start: 201207
  4. RIBAVIRIN [Concomitant]
     Indication: HEPATITIS C
     Dosage: 600 mg, bid
     Route: 048
     Dates: start: 20120706, end: 201207
  5. RIBAVIRIN [Concomitant]
     Dosage: 200 mg, bid
     Route: 048
     Dates: start: 201208

REACTIONS (3)
  - Anaemia [Unknown]
  - Incorrect drug administration duration [Recovered/Resolved]
  - Fatigue [Unknown]
